FAERS Safety Report 16278171 (Version 1)
Quarter: 2019Q2

REPORT INFORMATION
  Report Type: Spontaneous
  Country: FR (occurrence: FR)
  Receive Date: 20190506
  Receipt Date: 20190506
  Transmission Date: 20190711
  Serious: Yes (Hospitalization, Other)
  Sender: FDA-Public Use
  Company Number: FR-MYLANLABS-2019M1042482

PATIENT
  Age: 11 Year
  Sex: Male
  Weight: 37 kg

DRUGS (3)
  1. METHOTREXATE. [Suspect]
     Active Substance: METHOTREXATE
     Indication: OSTEOSARCOMA
     Dosage: 11 GRAM, CYCLE (11 G,QCY)
     Route: 041
     Dates: start: 20120615
  2. RIFADINE                           /00146901/ [Interacting]
     Active Substance: RIFAMPIN
     Indication: STAPHYLOCOCCUS TEST POSITIVE
     Dosage: 300 MILLIGRAM, QD
     Route: 048
     Dates: start: 20120608
  3. FUCIDIN                            /00065702/ [Interacting]
     Active Substance: FUSIDATE SODIUM
     Indication: STAPHYLOCOCCUS TEST POSITIVE
     Dosage: 500 MILLIGRAM, QD (500 MG,TID)
     Route: 048
     Dates: start: 20120608

REACTIONS (3)
  - Leukopenia [Recovered/Resolved]
  - Drug interaction [Unknown]
  - Thrombocytopenia [Recovered/Resolved]

NARRATIVE: CASE EVENT DATE: 20120617
